FAERS Safety Report 25158884 (Version 1)
Quarter: 2025Q2

REPORT INFORMATION
  Report Type: Spontaneous
  Country: US (occurrence: US)
  Receive Date: 20250404
  Receipt Date: 20250404
  Transmission Date: 20250717
  Serious: Yes (Life-Threatening, Hospitalization, Other)
  Sender: ADARE PHARMACEUTICALS
  Company Number: US-ADAREPHARM-2025-US-000019

PATIENT
  Age: 32 Year
  Sex: Female

DRUGS (2)
  1. PROPRANOLOL [Suspect]
     Active Substance: PROPRANOLOL HYDROCHLORIDE
  2. BUPROPION [Suspect]
     Active Substance: BUPROPION

REACTIONS (4)
  - Cardiogenic shock [Recovered/Resolved]
  - Ventricular tachycardia [Recovered/Resolved]
  - Overdose [Recovered/Resolved]
  - Cardiopulmonary failure [Recovered/Resolved]
